FAERS Safety Report 25787486 (Version 2)
Quarter: 2025Q3

REPORT INFORMATION
  Report Type: Report from Study
  Country: CN (occurrence: CN)
  Receive Date: 20250910
  Receipt Date: 20250923
  Transmission Date: 20251021
  Serious: Yes (Life-Threatening)
  Sender: ROCHE
  Company Number: CN-ROCHE-10000380833

PATIENT
  Age: 49 Year
  Sex: Female
  Weight: 58 kg

DRUGS (58)
  1. RITUXIMAB [Suspect]
     Active Substance: RITUXIMAB
     Indication: Diffuse large B-cell lymphoma
     Route: 042
     Dates: start: 20240612, end: 20240613
  2. RITUXIMAB [Suspect]
     Active Substance: RITUXIMAB
     Route: 042
     Dates: start: 20241105, end: 20241105
  3. POLATUZUMAB VEDOTIN [Suspect]
     Active Substance: POLATUZUMAB VEDOTIN
     Indication: Diffuse large B-cell lymphoma
     Route: 042
     Dates: start: 20240613, end: 20240613
  4. CYCLOPHOSPHAMIDE [Suspect]
     Active Substance: CYCLOPHOSPHAMIDE
     Indication: Diffuse large B-cell lymphoma
     Route: 042
     Dates: start: 20240613, end: 20240614
  5. CYCLOPHOSPHAMIDE [Suspect]
     Active Substance: CYCLOPHOSPHAMIDE
     Route: 042
     Dates: start: 20241106, end: 20241106
  6. METHYLPREDNISOLONE [Suspect]
     Active Substance: METHYLPREDNISOLONE
     Indication: Diffuse large B-cell lymphoma
     Route: 042
     Dates: start: 20240608, end: 20240612
  7. EPIRUBICIN HYDROCHLORIDE [Suspect]
     Active Substance: EPIRUBICIN HYDROCHLORIDE
     Indication: Diffuse large B-cell lymphoma
     Route: 042
     Dates: start: 20240613, end: 20240614
  8. ETOPOSIDE [Suspect]
     Active Substance: ETOPOSIDE
     Indication: Diffuse large B-cell lymphoma
     Route: 042
     Dates: start: 20241106, end: 20241106
  9. VINCRISTINE [Suspect]
     Active Substance: VINCRISTINE
     Indication: Diffuse large B-cell lymphoma
     Route: 042
     Dates: start: 20241109, end: 20241109
  10. EPIRUBICIN [Suspect]
     Active Substance: EPIRUBICIN
     Indication: Diffuse large B-cell lymphoma
     Route: 042
     Dates: start: 20241109, end: 20241109
  11. DEXAMETHASONE [Suspect]
     Active Substance: DEXAMETHASONE
     Indication: Diffuse large B-cell lymphoma
     Route: 042
     Dates: start: 20241106, end: 20241110
  12. ZANUBRUTINIB [Suspect]
     Active Substance: ZANUBRUTINIB
     Indication: Diffuse large B-cell lymphoma
     Route: 048
     Dates: start: 20241106, end: 20241202
  13. ENTECAVIR [Concomitant]
     Active Substance: ENTECAVIR
  14. SULFAMETHOXAZOLE [Concomitant]
     Active Substance: SULFAMETHOXAZOLE
  15. ACYCLOVIR [Concomitant]
     Active Substance: ACYCLOVIR
  16. LEUCOGEN [Concomitant]
     Active Substance: LEUCOGEN
  17. CALCIUM CARBONATE\CHOLECALCIFEROL [Concomitant]
     Active Substance: CALCIUM CARBONATE\CHOLECALCIFEROL
  18. METHYLCOBALAMIN [Concomitant]
     Active Substance: METHYLCOBALAMIN
  19. METRONIDAZOLE [Concomitant]
     Active Substance: METRONIDAZOLE
  20. LEVOFLOXACIN [Concomitant]
     Active Substance: LEVOFLOXACIN
  21. URSODIOL [Concomitant]
     Active Substance: URSODIOL
  22. Drospirenone and ethinylestradiol [Concomitant]
  23. FLUCONAZOLE [Concomitant]
     Active Substance: FLUCONAZOLE
  24. ALPROSTADIL [Concomitant]
     Active Substance: ALPROSTADIL
  25. FUROSEMIDE [Concomitant]
     Active Substance: FUROSEMIDE
  26. TORSEMIDE [Concomitant]
     Active Substance: TORSEMIDE
  27. POTASSIUM CHLORIDE [Concomitant]
     Active Substance: POTASSIUM CHLORIDE
  28. OMEPRAZOLE [Concomitant]
     Active Substance: OMEPRAZOLE
  29. ONDANSETRON HYDROCHLORIDE [Concomitant]
     Active Substance: ONDANSETRON HYDROCHLORIDE
  30. SEMUSTINE [Concomitant]
     Active Substance: SEMUSTINE
  31. MAGNESIUM ISOGLYCYRRHIZINATE [Concomitant]
     Active Substance: MAGNESIUM ISOGLYCYRRHIZINATE
  32. DEXAMETHASONE SODIUM PHOSPHATE [Concomitant]
     Active Substance: DEXAMETHASONE SODIUM PHOSPHATE
  33. CYTARABINE HYDROCHLORIDE [Concomitant]
     Active Substance: CYTARABINE HYDROCHLORIDE
  34. ETOPOSIDE [Concomitant]
     Active Substance: ETOPOSIDE
  35. MONTMORILLONITE [Concomitant]
     Active Substance: MONTMORILLONITE
  36. BERBERINE [Concomitant]
     Active Substance: BERBERINE
  37. GLUTATHIONE [Concomitant]
     Active Substance: GLUTATHIONE
  38. LOPERAMIDE HYDROCHLORIDE [Concomitant]
     Active Substance: LOPERAMIDE HYDROCHLORIDE
  39. OCTREOTIDE ACETATE [Concomitant]
     Active Substance: OCTREOTIDE ACETATE
  40. SUCRALFATE [Concomitant]
     Active Substance: SUCRALFATE
  41. BATROXOBIN [Concomitant]
     Active Substance: BATROXOBIN
  42. MEROPENEM [Concomitant]
     Active Substance: MEROPENEM
  43. Succoinylated Gelatin [Concomitant]
  44. ACETYLCYSTEINE [Concomitant]
     Active Substance: ACETYLCYSTEINE
  45. AVATROMBOPAG [Concomitant]
     Active Substance: AVATROMBOPAG
  46. LEVOFLOXACIN [Concomitant]
     Active Substance: LEVOFLOXACIN
  47. CASPOFUNGIN ACETATE [Concomitant]
     Active Substance: CASPOFUNGIN ACETATE
  48. Lyophilizing Thrombin [Concomitant]
  49. INSULIN HUMAN [Concomitant]
     Active Substance: INSULIN HUMAN
  50. ESOMEPRAZOLE SODIUM [Concomitant]
     Active Substance: ESOMEPRAZOLE SODIUM
  51. AMINOPHYLLINE\CHLORPHENIRAMINE MALEATE\METHOXYPHENAMINE HYDROCHLORIDE\ [Concomitant]
     Active Substance: AMINOPHYLLINE\CHLORPHENIRAMINE MALEATE\METHOXYPHENAMINE HYDROCHLORIDE\NOSCAPINE
  52. PROMETHAZINE HYDROCHLORIDE [Concomitant]
     Active Substance: PROMETHAZINE HYDROCHLORIDE
  53. IBUPROFEN [Concomitant]
     Active Substance: IBUPROFEN
  54. ROXITHROMYCIN [Concomitant]
     Active Substance: ROXITHROMYCIN
  55. CETIRIZINE HYDROCHLORIDE [Concomitant]
     Active Substance: CETIRIZINE HYDROCHLORIDE
  56. Recombinant Human Granulocyte Colony-stimulating Factor for Injection [Concomitant]
  57. PEGylated Recombinant Human Granulocyte Colony- Stimulating Factor Inj [Concomitant]
  58. Cefoperazone sulbactam sodium for injection [Concomitant]

REACTIONS (1)
  - Myelosuppression [Recovered/Resolved]

NARRATIVE: CASE EVENT DATE: 20250109
